FAERS Safety Report 5261371-X (Version None)
Quarter: 2007Q1

REPORT INFORMATION
  Report Type: 
  Country: None (occurrence: None)
  Receive Date: 20070307
  Receipt Date: 20070228
  Transmission Date: 20070707
  Serious: Yes (Death, Life-Threatening, Hospitalization)
  Sender: FDA-Public Use
  Company Number: 163-C5013-07021354

PATIENT
  Age: 89 Year
  Sex: Male
  Weight: 84.9 kg

DRUGS (25)
  1. CC-5013 (LENALIDOMIDE) (CAPSULES) [Suspect]
     Indication: MYELODYSPLASTIC SYNDROME
     Dosage: 5 MG, M, W, F, ORAL
     Route: 048
     Dates: start: 20040129, end: 20070226
  2. COLACE (DOCUSATE SODIUM) [Concomitant]
  3. QUESTRAN [Concomitant]
  4. LORTAB [Concomitant]
  5. INDERAL [Concomitant]
  6. DILANTIN [Concomitant]
  7. PROTONIX [Concomitant]
  8. NIACIN [Concomitant]
  9. ALTACE [Concomitant]
  10. MILK OF MAGNESIUM (MAGNESIUM HYDROXIDE) [Concomitant]
  11. BISACODYL [Concomitant]
  12. SODIUM PHOSPHATES [Concomitant]
  13. ZITHROMAX [Concomitant]
  14. AMOXICILLIN [Concomitant]
  15. TESSALON [Concomitant]
  16. TYLENOL [Concomitant]
  17. SODIUM CHLORIDE [Concomitant]
  18. DOPAMINE HCL [Concomitant]
  19. VANCOMYCIN [Concomitant]
  20. HEPARIN [Concomitant]
  21. FOSPHENYTOIN [Concomitant]
  22. IPRATROPIUM BROMIDE [Concomitant]
  23. ALBUTEROL [Concomitant]
  24. ZOSYN [Concomitant]
  25. ACCUZYME (ACCUZYME) [Concomitant]

REACTIONS (7)
  - ACUTE CORONARY SYNDROME [None]
  - ATELECTASIS [None]
  - DEPRESSED LEVEL OF CONSCIOUSNESS [None]
  - HEART RATE DECREASED [None]
  - HYPOTENSION [None]
  - PNEUMONIA [None]
  - SEPSIS [None]
